FAERS Safety Report 23623628 (Version 1)
Quarter: 2024Q1

REPORT INFORMATION
  Report Type: Spontaneous
  Country: US (occurrence: US)
  Receive Date: 20240312
  Receipt Date: 20240312
  Transmission Date: 20240410
  Serious: No
  Sender: FDA-Public Use
  Company Number: US-002147023-NVSC2024US052932

PATIENT
  Age: 1 Month
  Sex: Male

DRUGS (1)
  1. ONASEMNOGENE ABEPARVOVEC [Suspect]
     Active Substance: ONASEMNOGENE ABEPARVOVEC
     Indication: Spinal muscular atrophy
     Dosage: UNK
     Route: 017
     Dates: start: 202305, end: 202305

REACTIONS (2)
  - Thrombocytosis [Recovered/Resolved]
  - Platelet count decreased [Recovered/Resolved]
